FAERS Safety Report 8044271-1 (Version None)
Quarter: 2012Q1

REPORT INFORMATION
  Report Type: 
  Country: None (occurrence: None)
  Receive Date: 20120113
  Receipt Date: 20120106
  Transmission Date: 20120608
  Serious: Yes (Hospitalization)
  Sender: FDA-Public Use
  Company Number: FR-SANOFI-AVENTIS-2011SA059407

PATIENT
  Age: 75 Year
  Sex: Male
  Weight: 80 kg

DRUGS (11)
  1. INDAPAMIDE [Concomitant]
     Route: 048
  2. ACETAMINOPHEN [Concomitant]
  3. TADENAN [Concomitant]
     Route: 048
  4. IBUPROFEN [Concomitant]
  5. PERINDOPRIL [Concomitant]
     Route: 048
  6. NEBIVOLOL HCL [Concomitant]
     Route: 048
  7. CHONDROSULF [Concomitant]
     Route: 048
     Dates: start: 20110501, end: 20110801
  8. LEVOTHYROXINE SODIUM [Concomitant]
     Route: 048
  9. ARAVA [Suspect]
     Indication: RHEUMATOID ARTHRITIS
     Route: 048
     Dates: start: 20050101, end: 20110901
  10. VASTAREL ^BIOPHARMA^ [Concomitant]
     Route: 048
  11. MIOREL [Concomitant]
     Route: 048

REACTIONS (8)
  - PURPURA [None]
  - WEIGHT DECREASED [None]
  - PYREXIA [None]
  - SINUSITIS [None]
  - GENERAL PHYSICAL HEALTH DETERIORATION [None]
  - ANAEMIA [None]
  - NON-HODGKIN'S LYMPHOMA [None]
  - CHILLS [None]
